FAERS Safety Report 13802670 (Version 2)
Quarter: 2017Q3

REPORT INFORMATION
  Report Type: Spontaneous
  Country: US (occurrence: US)
  Receive Date: 20170727
  Receipt Date: 20170904
  Transmission Date: 20171127
  Serious: Yes (Hospitalization)
  Sender: FDA-Public Use
  Company Number: US-ASTRAZENECA-2017SE75965

PATIENT
  Age: 51 Year
  Sex: Female
  Weight: 54.4 kg

DRUGS (13)
  1. DIGITEC [Concomitant]
  2. ASPIRIN. [Concomitant]
     Active Substance: ASPIRIN
     Dates: end: 201704
  3. SYMBICORT [Suspect]
     Active Substance: BUDESONIDE\FORMOTEROL FUMARATE DIHYDRATE
     Dosage: 160/4.5 TWO PUFFS TWICE A DAY
     Route: 055
     Dates: start: 20170718
  4. TUDORZA PRESSAIR [Suspect]
     Active Substance: ACLIDINIUM BROMIDE
     Indication: LUNG DISORDER
     Route: 055
     Dates: start: 2017
  5. ALLEGRA [Concomitant]
     Active Substance: FEXOFENADINE HYDROCHLORIDE
  6. SYMBICORT [Suspect]
     Active Substance: BUDESONIDE\FORMOTEROL FUMARATE DIHYDRATE
     Dosage: 160/4.5 TWO PUFFS TWICE A DAY
     Route: 055
  7. ZOCOR [Concomitant]
     Active Substance: SIMVASTATIN
     Indication: BLOOD CHOLESTEROL INCREASED
     Route: 048
  8. LISINOPRIL. [Suspect]
     Active Substance: LISINOPRIL
     Indication: BLOOD PRESSURE ABNORMAL
     Route: 048
  9. CARVEDILOL. [Concomitant]
     Active Substance: CARVEDILOL
     Dosage: 31/25MG TWICE A DAY
  10. LISINOPRIL. [Suspect]
     Active Substance: LISINOPRIL
     Indication: BLOOD PRESSURE ABNORMAL
     Dosage: CUTS 5MG IN HALF AND TAKES IT TWICE A DAY
     Route: 048
  11. CLARITIN [Concomitant]
     Active Substance: LORATADINE
     Indication: MULTIPLE ALLERGIES
     Route: 048
     Dates: end: 2017
  12. MULTIVITAMIN [Concomitant]
     Active Substance: VITAMINS
     Route: 048
  13. LASIX [Concomitant]
     Active Substance: FUROSEMIDE
     Dates: end: 201704

REACTIONS (7)
  - Cardiac failure [Recovered/Resolved]
  - Contusion [Unknown]
  - Intentional product misuse [Unknown]
  - Device malfunction [Unknown]
  - Blood cholesterol abnormal [Unknown]
  - Cardiac disorder [Recovered/Resolved]
  - Chest pain [Recovering/Resolving]

NARRATIVE: CASE EVENT DATE: 2016
